FAERS Safety Report 7424655-2 (Version None)
Quarter: 2011Q2

REPORT INFORMATION
  Report Type: 
  Country: None (occurrence: None)
  Receive Date: 20110419
  Receipt Date: 20080828
  Transmission Date: 20111010
  Serious: Yes (Hospitalization, Other)
  Sender: FDA-Public Use
  Company Number: US-BAYER-201031082NA

PATIENT
  Age: 72 Year
  Sex: Male
  Weight: 79.365 kg

DRUGS (10)
  1. RED BLOOD CELLS [Concomitant]
     Dosage: UNK
     Dates: start: 20051227
  2. METOPROLOL SUCCINATE [Concomitant]
     Dosage: 25 MG, UNK
     Route: 048
  3. VANCOMYCIN [Concomitant]
     Dosage: 1 G, UNK
  4. LEVOPHED [Concomitant]
  5. ASPIRIN [Concomitant]
     Dosage: 325 MG, UNK
     Route: 048
  6. TRASYLOL [Suspect]
     Indication: AORTIC VALVE REPLACEMENT
     Dosage: 2 MILLION UNITS PER CARDIOPULMONARY BYPASS PUMP PRIME
     Dates: start: 20051227
  7. CRYOPRECIPITATES [Concomitant]
     Dosage: UNK
     Dates: start: 20051227
  8. PLATELETS [Concomitant]
     Dosage: UNK
     Dates: start: 20051227
  9. PROTAMINE SULFATE [Concomitant]
  10. INSULIN [Concomitant]

REACTIONS (8)
  - CEREBROVASCULAR ACCIDENT [None]
  - ANXIETY [None]
  - PAIN [None]
  - EMOTIONAL DISTRESS [None]
  - UNEVALUABLE EVENT [None]
  - BLINDNESS [None]
  - FEAR [None]
  - STRESS [None]
